FAERS Safety Report 24139155 (Version 1)
Quarter: 2024Q3

REPORT INFORMATION
  Report Type: Spontaneous
  Country: TR (occurrence: TR)
  Receive Date: 20240726
  Receipt Date: 20240726
  Transmission Date: 20241016
  Serious: Yes (Hospitalization)
  Sender: AMGEN
  Company Number: TR-AMGEN-TURSP2024143225

PATIENT
  Age: 10 Year
  Sex: Female

DRUGS (1)
  1. NPLATE [Suspect]
     Active Substance: ROMIPLOSTIM
     Indication: Immune thrombocytopenia
     Dosage: 5 MICROGRAM/KILOGRAM, QWK
     Route: 058
     Dates: start: 20240704, end: 20240711

REACTIONS (2)
  - Blindness unilateral [Unknown]
  - Visual impairment [Unknown]

NARRATIVE: CASE EVENT DATE: 20240717
